FAERS Safety Report 19651552 (Version 1)
Quarter: 2021Q3

REPORT INFORMATION
  Report Type: Spontaneous
  Country: NL (occurrence: NL)
  Receive Date: 20210803
  Receipt Date: 20210803
  Transmission Date: 20211014
  Serious: Yes (Other)
  Sender: FDA-Public Use
  Company Number: NL-MYLANLABS-2021M1046599

PATIENT
  Age: 22 Year
  Sex: Male
  Weight: 70 kg

DRUGS (1)
  1. TRIAMCINOLONACETONIDE ZALF MYLAN 1 MG/G, WATER?EMULGERENDE ZALF [Suspect]
     Active Substance: TRIAMCINOLONE ACETONIDE
     Indication: DERMATITIS ATOPIC
     Dosage: 1 DOSAGE FORM, BID (LUBRICATE 2 X A DAY ON ECZEMA)
     Dates: start: 201701, end: 20210107

REACTIONS (7)
  - Skin exfoliation [Recovering/Resolving]
  - Erythema [Recovering/Resolving]
  - Steroid withdrawal syndrome [Recovering/Resolving]
  - Skin hypertrophy [Recovering/Resolving]
  - Wound secretion [Recovering/Resolving]
  - Rebound eczema [Recovering/Resolving]
  - Pruritus [Recovering/Resolving]

NARRATIVE: CASE EVENT DATE: 20210110
